FAERS Safety Report 9828378 (Version 1)
Quarter: 2014Q1

REPORT INFORMATION
  Report Type: Spontaneous
  Country: IT (occurrence: IT)
  Receive Date: 20140117
  Receipt Date: 20140117
  Transmission Date: 20141002
  Serious: Yes (Hospitalization)
  Sender: FDA-Public Use
  Company Number: IT-GLAXOSMITHKLINE-B0961074A

PATIENT
  Age: 8 Month
  Sex: Female

DRUGS (4)
  1. ARIXTRA [Suspect]
     Indication: PRODUCT USED FOR UNKNOWN INDICATION
     Dosage: 1U PER DAY
     Route: 065
     Dates: start: 20120920, end: 20121002
  2. LANOXIN [Suspect]
     Indication: PRODUCT USED FOR UNKNOWN INDICATION
     Dosage: .125MG PER DAY
     Route: 048
     Dates: start: 20120920, end: 20121002
  3. FUROSEMIDE [Suspect]
     Indication: PRODUCT USED FOR UNKNOWN INDICATION
     Route: 065
     Dates: start: 20120920, end: 20121002
  4. TAVOR [Concomitant]
     Route: 065

REACTIONS (1)
  - Rash erythematous [Recovering/Resolving]
